FAERS Safety Report 8594049-5 (Version None)
Quarter: 2012Q3

REPORT INFORMATION
  Report Type: 
  Country: None (occurrence: None)
  Receive Date: 20120814
  Receipt Date: 20120808
  Transmission Date: 20120928
  Serious: Yes (Other)
  Sender: FDA-Public Use
  Company Number: PHHY2012US068550

PATIENT
  Age: 60 Year
  Sex: Male

DRUGS (3)
  1. RIBAVIRIN [Suspect]
     Indication: HEPATITIS C
  2. INCIVEK [Suspect]
     Indication: HEPATITIS C
  3. PEGINTERFERON ALFA-2A [Suspect]
     Indication: HEPATITIS C

REACTIONS (11)
  - PALLOR [None]
  - DRUG RASH WITH EOSINOPHILIA AND SYSTEMIC SYMPTOMS [None]
  - PRURITUS [None]
  - EOSINOPHILIA [None]
  - MUSCULOSKELETAL PAIN [None]
  - ERYTHEMA [None]
  - RASH [None]
  - SKIN PLAQUE [None]
  - THROMBOCYTOPENIA [None]
  - PAPULE [None]
  - DRUG INEFFECTIVE [None]
